FAERS Safety Report 20023960 (Version 1)
Quarter: 2021Q4

REPORT INFORMATION
  Report Type: Spontaneous
  Country: BE (occurrence: BE)
  Receive Date: 20211102
  Receipt Date: 20211102
  Transmission Date: 20220303
  Serious: Yes (Other)
  Sender: FDA-Public Use
  Company Number: BE-MLMSERVICE-20211018-3173965-1

PATIENT
  Age: 55 Year
  Sex: Male

DRUGS (2)
  1. FLUOROURACIL [Suspect]
     Active Substance: FLUOROURACIL
     Indication: Metastasis
     Dates: start: 201910, end: 2019
  2. CARBOPLATIN [Concomitant]
     Active Substance: CARBOPLATIN
     Indication: Oesophageal squamous cell carcinoma
     Dates: start: 201910

REACTIONS (2)
  - Haemoptysis [Unknown]
  - Stomatitis [Unknown]

NARRATIVE: CASE EVENT DATE: 20190101
